FAERS Safety Report 16178237 (Version 1)
Quarter: 2019Q2

REPORT INFORMATION
  Report Type: Report from Study
  Country: US (occurrence: US)
  Receive Date: 20190410
  Receipt Date: 20190410
  Transmission Date: 20190711
  Serious: Yes (Hospitalization, Other)
  Sender: FDA-Public Use
  Company Number: US-SA-2017SA235010

PATIENT
  Age: 48 Year
  Sex: Female

DRUGS (6)
  1. RANITIDINE. [Concomitant]
     Active Substance: RANITIDINE
     Dosage: UNK UNK, UNK
     Route: 065
     Dates: start: 2016
  2. ADDERALL [Concomitant]
     Active Substance: AMPHETAMINE ASPARTATE\AMPHETAMINE SULFATE\DEXTROAMPHETAMINE SACCHARATE\DEXTROAMPHETAMINE SULFATE
     Dosage: UNK UNK, UNK
     Route: 065
     Dates: start: 201811
  3. HYDROXYZINE [Concomitant]
     Active Substance: HYDROXYZINE HYDROCHLORIDE
     Dosage: UNK UNK, UNK
     Route: 065
     Dates: start: 2016
  4. CYMBALTA [Concomitant]
     Active Substance: DULOXETINE HYDROCHLORIDE
     Dosage: 60 MG, BID
     Route: 065
     Dates: start: 2012
  5. VALTREX [Concomitant]
     Active Substance: VALACYCLOVIR HYDROCHLORIDE
     Dosage: UNK UNK, UNK
     Route: 065
     Dates: start: 2016
  6. ALEMTUZUMAB [Suspect]
     Active Substance: ALEMTUZUMAB
     Indication: MULTIPLE SCLEROSIS
     Dosage: 12 MG,QD
     Route: 041
     Dates: start: 20171113, end: 20171115

REACTIONS (17)
  - Menstrual disorder [Not Recovered/Not Resolved]
  - Abnormal dreams [Recovered/Resolved]
  - Heart rate increased [Not Recovered/Not Resolved]
  - Feeling hot [Unknown]
  - Pigmentation disorder [Unknown]
  - Asthenia [Unknown]
  - Hypertension [Not Recovered/Not Resolved]
  - Petechiae [Unknown]
  - Pyrexia [Recovered/Resolved]
  - Contusion [Unknown]
  - Platelet count abnormal [Recovered/Resolved]
  - Rash erythematous [Unknown]
  - Feeling cold [Unknown]
  - Immune thrombocytopenic purpura [Not Recovered/Not Resolved]
  - Headache [Unknown]
  - Hyperhidrosis [Unknown]
  - Feeling abnormal [Recovered/Resolved]

NARRATIVE: CASE EVENT DATE: 201711
